FAERS Safety Report 15313700 (Version 14)
Quarter: 2022Q2

REPORT INFORMATION
  Report Type: Other
  Country: CA (occurrence: None)
  Receive Date: 20180824
  Receipt Date: 20220406
  Transmission Date: 20220720
  Serious: Yes (Other)
  Sender: FDA-Public Use
  Company Number: CA-ROCHE-1155666

PATIENT
  Age: 58 Year
  Sex: Female
  Weight: 77.1 kg

DRUGS (34)
  1. RITUXAN [Suspect]
     Active Substance: RITUXIMAB
     Indication: Rheumatoid arthritis
     Route: 042
     Dates: start: 20120614, end: 20200312
  2. RITUXAN [Suspect]
     Active Substance: RITUXIMAB
     Route: 042
     Dates: start: 20150428
  3. RITUXAN [Suspect]
     Active Substance: RITUXIMAB
     Dosage: SINGLE INFUSION
     Route: 042
     Dates: start: 20200930, end: 20220324
  4. MEDROXYPROGESTERONE ACETATE [Concomitant]
     Active Substance: MEDROXYPROGESTERONE ACETATE
  5. HYDROXYCHLOROQUINE [Concomitant]
     Active Substance: HYDROXYCHLOROQUINE
  6. FOLIC ACID [Concomitant]
     Active Substance: FOLIC ACID
  7. HYDROXYZINE [Concomitant]
     Active Substance: HYDROXYZINE HYDROCHLORIDE
  8. NEXIUM [Concomitant]
     Active Substance: ESOMEPRAZOLE MAGNESIUM
  9. DIPHENHYDRAMINE HYDROCHLORIDE [Concomitant]
     Active Substance: DIPHENHYDRAMINE HYDROCHLORIDE
     Indication: Premedication
     Route: 048
     Dates: start: 20120614
  10. ACETAMINOPHEN [Concomitant]
     Active Substance: ACETAMINOPHEN
     Indication: Premedication
     Route: 048
     Dates: start: 20120614, end: 20120614
  11. ACETAMINOPHEN [Concomitant]
     Active Substance: ACETAMINOPHEN
     Route: 048
     Dates: start: 20120627
  12. METHYLPREDNISOLONE [Concomitant]
     Active Substance: METHYLPREDNISOLONE
     Indication: Premedication
     Route: 042
     Dates: start: 20120614
  13. METHYLPREDNISOLONE [Concomitant]
     Active Substance: METHYLPREDNISOLONE
     Route: 042
     Dates: start: 20121214, end: 20121214
  14. AVAPRO [Concomitant]
     Active Substance: IRBESARTAN
  15. HYDROMORPHONE [Concomitant]
     Active Substance: HYDROMORPHONE
     Indication: Back pain
  16. EFFEXOR [Concomitant]
     Active Substance: VENLAFAXINE HYDROCHLORIDE
  17. INSULIN NOS [Concomitant]
     Active Substance: INSULIN NOS
  18. RAMIPRIL [Concomitant]
     Active Substance: RAMIPRIL
  19. ASPIRIN [Concomitant]
     Active Substance: ASPIRIN
  20. GEMFIBROZIL [Concomitant]
     Active Substance: GEMFIBROZIL
  21. LIPITOR [Concomitant]
     Active Substance: ATORVASTATIN CALCIUM
  22. ASPIRIN [Concomitant]
     Active Substance: ASPIRIN
  23. LEFLUNOMIDE [Concomitant]
     Active Substance: LEFLUNOMIDE
  24. ALBUTEROL [Concomitant]
     Active Substance: ALBUTEROL
  25. LUCENTIS [Concomitant]
     Active Substance: RANIBIZUMAB
  26. HYDROMORPHONE [Concomitant]
     Active Substance: HYDROMORPHONE
  27. METFORMIN [Concomitant]
     Active Substance: METFORMIN HYDROCHLORIDE
  28. METHOTREXATE [Concomitant]
     Active Substance: METHOTREXATE
  29. SOLU-MEDROL [Concomitant]
     Active Substance: METHYLPREDNISOLONE SODIUM SUCCINATE
     Indication: Premedication
     Route: 042
  30. BENADRYL [Concomitant]
     Active Substance: DIPHENHYDRAMINE HYDROCHLORIDE
     Indication: Premedication
     Route: 048
  31. TYLENOL [Concomitant]
     Active Substance: ACETAMINOPHEN
     Indication: Premedication
     Route: 048
  32. ESTRADIOL [Concomitant]
     Active Substance: ESTRADIOL
  33. DICLOFENAC [Concomitant]
     Active Substance: DICLOFENAC
  34. TOPIRAMATE [Concomitant]
     Active Substance: TOPIRAMATE

REACTIONS (26)
  - Herpes zoster [Recovered/Resolved]
  - Herpes simplex [Unknown]
  - Neuralgia [Unknown]
  - Rheumatoid arthritis [Not Recovered/Not Resolved]
  - Fatigue [Not Recovered/Not Resolved]
  - Loose tooth [Recovered/Resolved]
  - Periodontitis [Not Recovered/Not Resolved]
  - Back pain [Unknown]
  - Skin laceration [Recovering/Resolving]
  - Body temperature decreased [Unknown]
  - Blood pressure systolic increased [Unknown]
  - Oxygen saturation decreased [Unknown]
  - Throat irritation [Recovered/Resolved]
  - Localised infection [Unknown]
  - Pain in extremity [Unknown]
  - Blood pressure diastolic increased [Unknown]
  - Oropharyngeal pain [Unknown]
  - Blood pressure fluctuation [Unknown]
  - Influenza like illness [Not Recovered/Not Resolved]
  - Blood pressure increased [Unknown]
  - Laryngitis [Unknown]
  - Oxygen saturation decreased [Unknown]
  - Tonsillitis [Unknown]
  - Pharyngitis [Not Recovered/Not Resolved]
  - Pyrexia [Unknown]
  - Off label use [Unknown]

NARRATIVE: CASE EVENT DATE: 20121029
